FAERS Safety Report 9307315 (Version 1)
Quarter: 2013Q2

REPORT INFORMATION
  Report Type: Spontaneous
  Country: US (occurrence: US)
  Receive Date: 20130524
  Receipt Date: 20130524
  Transmission Date: 20140414
  Serious: No
  Sender: FDA-Public Use
  Company Number: US-BIOGENIDEC-2013BI046580

PATIENT
  Sex: Female

DRUGS (2)
  1. AVONEX [Suspect]
     Indication: MULTIPLE SCLEROSIS
     Route: 030
     Dates: start: 19961001
  2. AVONEX [Suspect]
     Indication: MULTIPLE SCLEROSIS
     Route: 030
     Dates: start: 20130206

REACTIONS (4)
  - Blood pressure increased [Not Recovered/Not Resolved]
  - Feeling cold [Not Recovered/Not Resolved]
  - Flushing [Not Recovered/Not Resolved]
  - Palpitations [Not Recovered/Not Resolved]
